FAERS Safety Report 8891380 (Version 1)
Quarter: 2012Q4

REPORT INFORMATION
  Report Type: Spontaneous
  Country: US (occurrence: None)
  Receive Date: 20121105
  Receipt Date: 20121105
  Transmission Date: 20130627
  Serious: No
  Sender: FDA-Public Use
  Company Number: None

PATIENT
  Sex: Male
  Weight: 63.96 kg

DRUGS (1)
  1. CONCERTA, 54 MG [Suspect]
     Indication: ADHD

REACTIONS (3)
  - Therapeutic response unexpected with drug substitution [None]
  - Impulsive behaviour [None]
  - Disturbance in attention [None]
